FAERS Safety Report 6215755-3 (Version None)
Quarter: 2009Q2

REPORT INFORMATION
  Report Type: 
  Country: None (occurrence: None)
  Receive Date: 20090605
  Receipt Date: 20070830
  Transmission Date: 20091009
  Serious: Yes (Other)
  Sender: FDA-Public Use
  Company Number: US-ASTRAZENECA-2007UW01796

PATIENT
  Age: 25 Year
  Sex: Male

DRUGS (35)
  1. SEROQUEL [Suspect]
     Indication: DEPRESSION
     Route: 048
     Dates: start: 19980922, end: 19990622
  2. SEROQUEL [Suspect]
     Indication: SCHIZOPHRENIA
     Route: 048
     Dates: start: 19980922, end: 19990622
  3. SEROQUEL [Suspect]
     Indication: INSOMNIA
     Route: 048
     Dates: start: 19980922, end: 19990622
  4. SEROQUEL [Suspect]
     Route: 048
     Dates: start: 19990601, end: 20020201
  5. SEROQUEL [Suspect]
     Route: 048
     Dates: start: 19990601, end: 20020201
  6. SEROQUEL [Suspect]
     Route: 048
     Dates: start: 19990601, end: 20020201
  7. SEROQUEL [Suspect]
     Route: 048
     Dates: start: 20020204, end: 20030419
  8. SEROQUEL [Suspect]
     Route: 048
     Dates: start: 20020204, end: 20030419
  9. SEROQUEL [Suspect]
     Route: 048
     Dates: start: 20020204, end: 20030419
  10. SEROQUEL [Suspect]
     Route: 048
     Dates: start: 20030101, end: 20031205
  11. SEROQUEL [Suspect]
     Route: 048
     Dates: start: 20030101, end: 20031205
  12. SEROQUEL [Suspect]
     Route: 048
     Dates: start: 20030101, end: 20031205
  13. SEROQUEL [Suspect]
     Route: 048
     Dates: start: 20040101
  14. SEROQUEL [Suspect]
     Route: 048
     Dates: start: 20040101
  15. SEROQUEL [Suspect]
     Route: 048
     Dates: start: 20040101
  16. SEROQUEL [Suspect]
     Dosage: 25-600 MG
     Route: 048
     Dates: start: 19990217
  17. SEROQUEL [Suspect]
     Dosage: 25-600 MG
     Route: 048
     Dates: start: 19990217
  18. SEROQUEL [Suspect]
     Dosage: 25-600 MG
     Route: 048
     Dates: start: 19990217
  19. ZYPREXA [Suspect]
     Indication: DEPRESSION
     Dates: start: 20020204, end: 20031205
  20. ZYPREXA [Suspect]
     Indication: SCHIZOPHRENIA
     Dates: start: 20020204, end: 20031205
  21. ZYPREXA [Suspect]
     Dates: start: 20020204
  22. ZYPREXA [Suspect]
     Dates: start: 20020204
  23. RISPERDAL [Concomitant]
     Dates: start: 19950810, end: 19950830
  24. DESYREL [Concomitant]
     Dosage: 25-200 MG
     Dates: start: 19990325
  25. ZOLOFT [Concomitant]
     Dosage: 25-75 MG
     Dates: start: 19990325
  26. CLOZARIL [Concomitant]
     Dosage: 400 MG, 425 MG, 500 MG DAILY
     Route: 048
     Dates: start: 19990514
  27. KLONOPIN [Concomitant]
     Dosage: 0.25 MG, 1 MG, 2 MG DAILY
     Dates: start: 19990325
  28. TYLENOL (CAPLET) [Concomitant]
     Dosage: 325 MG
     Dates: start: 20020116
  29. BENADRYL [Concomitant]
     Dosage: 25 MG
     Dates: start: 20020116
  30. HALDOL [Concomitant]
     Dosage: 2 MG THREE TIMES A DAY, 0.5 MG AT NIGHT
     Dates: start: 20020204
  31. PROZAC [Concomitant]
     Dosage: 40 MG EVERY MORNING, 40 MG AT NIGHT
     Dates: start: 20020204
  32. LORAZEPAM [Concomitant]
     Dosage: 1 MG
     Dates: start: 20030211
  33. ABILIFY [Concomitant]
     Dosage: 15 MG, 20 MG, 30 MG DAILY
     Route: 048
     Dates: start: 20020804
  34. GLUCOPHAGE XR [Concomitant]
     Dosage: 500 MG, 1000 MG
     Dates: start: 20020106
  35. GABITRIL [Concomitant]

REACTIONS (6)
  - DIABETES MELLITUS [None]
  - DIABETES MELLITUS INADEQUATE CONTROL [None]
  - HYPOAESTHESIA [None]
  - PANCREATITIS [None]
  - PANCREATITIS ACUTE [None]
  - TYPE 2 DIABETES MELLITUS [None]
